FAERS Safety Report 5026145-3 (Version None)
Quarter: 2006Q2

REPORT INFORMATION
  Report Type: 
  Country: None (occurrence: None)
  Receive Date: 20060608
  Receipt Date: 20060530
  Transmission Date: 20061013
  Serious: Yes (Death)
  Sender: FDA-Public Use
  Company Number: 14147

PATIENT
  Age: 66 Year
  Sex: Male

DRUGS (4)
  1. VINCRISTINE [Suspect]
  2. MABTHERA [Suspect]
  3. CYCLOPHOSPHAMIDE [Suspect]
  4. PREDNISOLONE [Suspect]

REACTIONS (4)
  - DISEASE RECURRENCE [None]
  - LIVER DISORDER [None]
  - PERIPHERAL T-CELL LYMPHOMA UNSPECIFIED [None]
  - THERAPY NON-RESPONDER [None]
